FAERS Safety Report 6030482-3 (Version None)
Quarter: 2009Q1

REPORT INFORMATION
  Report Type: 
  Country: None (occurrence: None)
  Receive Date: 20090106
  Receipt Date: 20090106
  Transmission Date: 20090719
  Serious: Yes (Hospitalization)
  Sender: FDA-Public Use
  Company Number: None

PATIENT
  Age: 51 Year
  Sex: Female
  Weight: 54.4316 kg

DRUGS (1)
  1. AVELOX [Suspect]
     Indication: BRONCHITIS
     Dosage: 400MG 1 PER DAY PO
     Route: 048
     Dates: start: 20081104, end: 20081106

REACTIONS (7)
  - ARTHRALGIA [None]
  - BURNING SENSATION [None]
  - HEADACHE [None]
  - MUSCLE DISORDER [None]
  - MYOSITIS [None]
  - NEUROPATHY PERIPHERAL [None]
  - TENDON PAIN [None]
